FAERS Safety Report 11448259 (Version 1)
Quarter: 2015Q3

REPORT INFORMATION
  Report Type: Spontaneous
  Country: US (occurrence: US)
  Receive Date: 20150831
  Receipt Date: 20150831
  Transmission Date: 20151125
  Serious: Yes (Hospitalization)
  Sender: FDA-Public Use
  Company Number: US-ELI_LILLY_AND_COMPANY-US200906005025

PATIENT
  Sex: Male

DRUGS (7)
  1. CYMBALTA [Suspect]
     Active Substance: DULOXETINE HYDROCHLORIDE
     Indication: PAIN IN EXTREMITY
     Dosage: 30 MG, UNK
     Dates: start: 200901
  2. FENTANYL. [Concomitant]
     Active Substance: FENTANYL
  3. ULTRAM [Concomitant]
     Active Substance: TRAMADOL HYDROCHLORIDE
  4. CYMBALTA [Suspect]
     Active Substance: DULOXETINE HYDROCHLORIDE
     Dosage: 90 MG, UNK
     Dates: start: 200904, end: 2009
  5. CYMBALTA [Suspect]
     Active Substance: DULOXETINE HYDROCHLORIDE
     Dosage: 60 MG, UNK
  6. CYMBALTA [Suspect]
     Active Substance: DULOXETINE HYDROCHLORIDE
     Dosage: 1 D/F, UNK
     Dates: start: 20090617
  7. MORPHINE [Concomitant]
     Active Substance: MORPHINE
     Indication: PAIN IN EXTREMITY
     Dosage: 60 MG, UNK

REACTIONS (5)
  - Suicidal ideation [Unknown]
  - Drug withdrawal syndrome [Unknown]
  - Drug ineffective [Recovered/Resolved]
  - Pain [Unknown]
  - Off label use [Not Recovered/Not Resolved]

NARRATIVE: CASE EVENT DATE: 2009
